FAERS Safety Report 7419333-X (Version None)
Quarter: 2011Q2

REPORT INFORMATION
  Report Type: 
  Country: None (occurrence: None)
  Receive Date: 20110415
  Receipt Date: 20110406
  Transmission Date: 20111010
  Serious: Yes (Hospitalization, Disabling)
  Sender: FDA-Public Use
  Company Number: US-ASTRAZENECA-2011SE19643

PATIENT
  Sex: Female

DRUGS (4)
  1. NEXIUM [Suspect]
     Route: 048
  2. PEPCID [Concomitant]
  3. PREDNISONE [Concomitant]
  4. PRILOSEC [Suspect]
     Route: 048
     Dates: start: 20110201

REACTIONS (5)
  - DISABILITY [None]
  - RHEUMATOID ARTHRITIS [None]
  - DRUG DOSE OMISSION [None]
  - GASTRIC MUCOSAL HYPERTROPHY [None]
  - WRONG DRUG ADMINISTERED [None]
